FAERS Safety Report 9971379 (Version 1)
Quarter: 2014Q1

REPORT INFORMATION
  Report Type: Spontaneous
  Country: US (occurrence: None)
  Receive Date: 20140305
  Receipt Date: 20140305
  Transmission Date: 20141002
  Serious: No
  Sender: FDA-Public Use
  Company Number: None

PATIENT
  Age: 48 Year
  Sex: Female
  Weight: 63.5 kg

DRUGS (1)
  1. NITROFURANTOIN [Suspect]
     Indication: URINARY TRACT INFECTION
     Route: 048
     Dates: start: 20140303, end: 20140303

REACTIONS (8)
  - Nausea [None]
  - Pruritus [None]
  - Pruritus [None]
  - Pruritus [None]
  - Urticaria [None]
  - Eye pruritus [None]
  - Hypopnoea [None]
  - Dizziness [None]
